FAERS Safety Report 9505956 (Version 1)
Quarter: 2013Q1

REPORT INFORMATION
  Report Type: Spontaneous
  Country: US (occurrence: None)
  Receive Date: 20130305
  Receipt Date: 20130305
  Transmission Date: 20140127
  Serious: No
  Sender: FDA-Public Use
  Company Number: 1000040780

PATIENT
  Age: 71 Year
  Sex: Male

DRUGS (3)
  1. DALIRESP (ROFLUMILAST) [Suspect]
     Indication: CHRONIC OBSTRUCTIVE PULMONARY DISEASE
     Dates: start: 20121128
  2. SYMBICORD [Suspect]
  3. SPIRIVA [Suspect]

REACTIONS (2)
  - Diarrhoea [None]
  - Decreased appetite [None]
